FAERS Safety Report 7036823-2 (Version None)
Quarter: 2010Q4

REPORT INFORMATION
  Report Type: 
  Country: None (occurrence: None)
  Receive Date: 20101011
  Receipt Date: 20101004
  Transmission Date: 20110411
  Serious: Yes (Hospitalization, Other)
  Sender: FDA-Public Use
  Company Number: US-ELI_LILLY_AND_COMPANY-US201005000631

PATIENT
  Sex: Male
  Weight: 129.25 kg

DRUGS (9)
  1. BYETTA [Suspect]
     Indication: DIABETES MELLITUS
     Dates: start: 20060317, end: 20060820
  2. GLUCOTROL [Concomitant]
     Indication: DIABETES MELLITUS
     Route: 048
  3. ACTOS [Concomitant]
  4. GLIPIZIDE [Concomitant]
     Indication: DIABETES MELLITUS
     Route: 048
  5. LANTUS [Concomitant]
     Indication: DIABETES MELLITUS
  6. TYLENOL (CAPLET) [Concomitant]
  7. ANTIBIOTICS [Concomitant]
  8. LABETALOL HCL [Concomitant]
  9. ATENOLOL [Concomitant]

REACTIONS (6)
  - CARDIAC FAILURE CONGESTIVE [None]
  - MYOCARDIAL INFARCTION [None]
  - OFF LABEL USE [None]
  - PANCREATITIS [None]
  - RENAL FAILURE [None]
  - RENAL FAILURE ACUTE [None]
